FAERS Safety Report 7291285-5 (Version None)
Quarter: 2011Q1

REPORT INFORMATION
  Report Type: 
  Country: None (occurrence: None)
  Receive Date: 20110201
  Receipt Date: 20110125
  Transmission Date: 20110831
  Serious: Yes (Disabling)
  Sender: FDA-Public Use
  Company Number: CAP11000020

PATIENT
  Age: 73 Year
  Sex: Female

DRUGS (1)
  1. ACTONEL [Suspect]
     Dosage: 75 MG, 2 CONSECUTIVE DAYS PER MONTH, ORAL
     Route: 048

REACTIONS (2)
  - PYREXIA [None]
  - FATIGUE [None]
